FAERS Safety Report 8354158 (Version 3)
Quarter: 2013Q1

REPORT INFORMATION
  Report Type: Spontaneous
  Country: US (occurrence: None)
  Receive Date: 20120113
  Receipt Date: 20130215
  Transmission Date: 20140127
  Serious: Yes (Other)
  Sender: FDA-Public Use
  Company Number: TPA2012A00127

PATIENT
  Sex: Female
  Weight: 72.58 kg

DRUGS (6)
  1. ACTOS [Suspect]
  2. METFORMIN (METFORMIN) [Concomitant]
  3. AVANDIA (ROSIGLITAZONE MALEATE) [Concomitant]
  4. GLARGINE (INSULIN GLARGINE) [Concomitant]
  5. MICRONASE (GLIBENCLAMIDE) [Concomitant]
  6. JANUVIA (SITAGLIPTIN PHOSPHATE) [Concomitant]

REACTIONS (1)
  - BLADDER INJURY [None]
